FAERS Safety Report 17375915 (Version 1)
Quarter: 2020Q1

REPORT INFORMATION
  Report Type: Spontaneous
  Country: GB (occurrence: GB)
  Receive Date: 20200206
  Receipt Date: 20200206
  Transmission Date: 20200409
  Serious: Yes (Death, Other)
  Sender: FDA-Public Use
  Company Number: GB-BRISTOL-MYERS SQUIBB COMPANY-BMS-2019-125373

PATIENT
  Age: 86 Year
  Sex: Female
  Weight: 82.2 kg

DRUGS (1)
  1. APIXABAN [Suspect]
     Active Substance: APIXABAN
     Indication: CEREBROVASCULAR ACCIDENT PROPHYLAXIS
     Dosage: 10 MILLIGRAM, PER DAY
     Route: 048
     Dates: end: 20191117

REACTIONS (5)
  - Malaise [Not Recovered/Not Resolved]
  - Headache [Unknown]
  - Cerebral haemorrhage [Fatal]
  - Hemiparesis [Unknown]
  - Sluggishness [Unknown]

NARRATIVE: CASE EVENT DATE: 20191117
